FAERS Safety Report 8725608 (Version 2)
Quarter: 2012Q4

REPORT INFORMATION
  Report Type: 
  Country: US (occurrence: US)
  Receive Date: 20120815
  Receipt Date: 20120914
  Transmission Date: 20130627
  Serious: Yes (Death)
  Sender: FDA-Public Use
  Company Number: US-PFIZER INC-2012194797

PATIENT
  Age: 90 Year
  Sex: Female
  Weight: 48.3 kg

DRUGS (12)
  1. CELECOXIB [Suspect]
     Indication: OSTEOARTHRITIS
     Dosage: 100 mg, 2x/day
     Route: 048
     Dates: start: 20090730
  2. SYNTHROID [Concomitant]
     Indication: HYPOTHYROIDISM
     Dosage: 0.05 mg, daily
     Route: 048
     Dates: start: 2002
  3. MULTIVITAMINS [Concomitant]
     Indication: MEDICAL DIET
     Dosage: 1 Tab, daily
     Route: 048
     Dates: start: 1960
  4. CALCIUM [Concomitant]
     Indication: OSTEOPOROSIS
     Dosage: 1200 mg, daily
     Route: 048
     Dates: start: 1940
  5. VITAMIN D [Concomitant]
     Indication: MEDICAL DIET
     Dosage: 2000 mg, dialy
     Route: 048
     Dates: start: 2007
  6. ACETYLSALICYLIC ACID [Concomitant]
     Indication: CARDIOVASCULAR EVENT PROPHYLAXIS
     Dosage: 81 mg, daily
     Route: 048
     Dates: start: 2000
  7. BENADRYL [Concomitant]
     Indication: RHINITIS SEASONAL
     Dosage: 1 Tab, pm
     Route: 048
     Dates: start: 1999
  8. ZOLEDRONIC ACID [Concomitant]
     Indication: OSTEOPOROSIS
     Dosage: 1 dose yearly
     Route: 042
     Dates: start: 2007
  9. NORITATE [Concomitant]
     Indication: ROSACEA
     Dosage: 1 app, qhs
     Route: 061
     Dates: start: 1988
  10. NIACIN [Concomitant]
     Indication: HYPERCHOLESTEROLAEMIA
     Dosage: 1 Tab, daily
     Route: 048
     Dates: start: 20100302
  11. CARTIA [Concomitant]
     Indication: HYPERTENSION
     Dosage: 120 mg, daily
     Route: 048
     Dates: start: 20111101
  12. LOSARTAN [Concomitant]
     Indication: HYPERTENSION
     Dosage: 1 Tab, daily
     Route: 048
     Dates: start: 20120110

REACTIONS (1)
  - Respiratory failure [Fatal]
